FAERS Safety Report 16391408 (Version 3)
Quarter: 2019Q3

REPORT INFORMATION
  Report Type: Report from Study
  Country: None (occurrence: CA)
  Receive Date: 20190604
  Receipt Date: 20190808
  Transmission Date: 20191004
  Serious: Yes (Other)
  Sender: FDA-Public Use
  Company Number: CA-ABBVIE-19K-028-2802412-00

PATIENT
  Sex: Female
  Weight: 92.62 kg

DRUGS (12)
  1. GRAVOL [Concomitant]
     Active Substance: DIMENHYDRINATE
     Indication: SLEEP DISORDER
  2. WELLBUTRIN [Concomitant]
     Active Substance: BUPROPION HYDROCHLORIDE
     Indication: PRODUCT USED FOR UNKNOWN INDICATION
  3. HUMIRA [Suspect]
     Active Substance: ADALIMUMAB
     Indication: HIDRADENITIS
     Route: 058
     Dates: start: 20190418, end: 20190527
  4. HUMIRA [Suspect]
     Active Substance: ADALIMUMAB
     Route: 058
     Dates: start: 2019
  5. NADOLOL. [Concomitant]
     Active Substance: NADOLOL
     Indication: MIGRAINE PROPHYLAXIS
  6. SYNTHROID [Concomitant]
     Active Substance: LEVOTHYROXINE SODIUM
     Indication: THYROID DISORDER
  7. RELPAX [Concomitant]
     Active Substance: ELETRIPTAN HYDROBROMIDE
     Indication: MIGRAINE
  8. VITAMINE B12 [Concomitant]
     Active Substance: CYANOCOBALAMIN
     Indication: VITAMIN SUPPLEMENTATION
  9. DULCOLAX NOS [Concomitant]
     Active Substance: BISACODYL OR DOCUSATE SODIUM
     Indication: CONSTIPATION
  10. CIPRALEX [Concomitant]
     Active Substance: ESCITALOPRAM OXALATE
     Indication: AFFECTIVE DISORDER
  11. MAXALT [Concomitant]
     Active Substance: RIZATRIPTAN BENZOATE
     Indication: MIGRAINE
  12. IRON [Concomitant]
     Active Substance: IRON
     Indication: BLOOD IRON DECREASED

REACTIONS (8)
  - Thinking abnormal [Recovered/Resolved]
  - Migraine [Unknown]
  - Depression [Unknown]
  - Mood altered [Unknown]
  - Neck pain [Unknown]
  - Self-injurious ideation [Not Recovered/Not Resolved]
  - Affective disorder [Not Recovered/Not Resolved]
  - Depressed mood [Unknown]

NARRATIVE: CASE EVENT DATE: 2019
